FAERS Safety Report 7657731-X (Version None)
Quarter: 2011Q3

REPORT INFORMATION
  Report Type: 
  Country: None (occurrence: None)
  Receive Date: 20110804
  Receipt Date: 20110725
  Transmission Date: 20111222
  Serious: Yes (Other)
  Sender: FDA-Public Use
  Company Number: DK-BAYER-2011-067771

PATIENT

DRUGS (1)
  1. NAPROXEN [Suspect]
     Route: 048

REACTIONS (2)
  - ATRIAL FIBRILLATION [None]
  - ATRIAL FLUTTER [None]
